FAERS Safety Report 7485642-1 (Version None)
Quarter: 2011Q2

REPORT INFORMATION
  Report Type: 
  Country: None (occurrence: None)
  Receive Date: 20110517
  Receipt Date: 20071220
  Transmission Date: 20111010
  Serious: Yes (Other)
  Sender: FDA-Public Use
  Company Number: US-BAYER-200716982NA

PATIENT
  Age: 71 Year
  Sex: Male
  Weight: 86.4 kg

DRUGS (12)
  1. TRASYLOL [Suspect]
     Indication: CORONARY ARTERY BYPASS
     Dosage: UNK
     Route: 042
     Dates: start: 20061206
  2. INDOMETHACIN [Concomitant]
  3. LASIX [Concomitant]
     Dosage: 40 MG, UNK
     Route: 042
  4. ANCEF [Concomitant]
     Dosage: 2 G, UNK
     Route: 042
  5. LOTREL [Concomitant]
  6. COLCHICINE [Concomitant]
  7. ENALAPRIL MALEATE [Concomitant]
  8. HEPARIN [Concomitant]
     Route: 042
  9. PROBENECID [Concomitant]
  10. METOPROLOL SUCCINATE [Concomitant]
     Dosage: UNK UNK, QD
  11. PROTAMINE SULFATE [Concomitant]
  12. RED BLOOD CELLS [Concomitant]
     Dosage: 3 U TOTAL (2U, THEN 1U)
     Dates: start: 20061206

REACTIONS (13)
  - PAIN [None]
  - EMOTIONAL DISTRESS [None]
  - RENAL INJURY [None]
  - ANXIETY [None]
  - NERVOUSNESS [None]
  - UNEVALUABLE EVENT [None]
  - FEAR [None]
  - ADVERSE EVENT [None]
  - RENAL FAILURE [None]
  - DEPRESSION [None]
  - INJURY [None]
  - ANHEDONIA [None]
  - MULTI-ORGAN FAILURE [None]
